FAERS Safety Report 9415341 (Version 3)
Quarter: 2013Q4

REPORT INFORMATION
  Report Type: Report from Study
  Country: FR (occurrence: FR)
  Receive Date: 20130723
  Receipt Date: 20131029
  Transmission Date: 20140711
  Serious: Yes (Hospitalization)
  Sender: FDA-Public Use
  Company Number: FR-ACTELION-A-CH2013-83979

PATIENT
  Age: 71 Year
  Sex: Male
  Weight: 72 kg

DRUGS (8)
  1. TRACLEER [Suspect]
     Indication: SCLERODERMA RENAL CRISIS
     Dosage: 125 MG, BID
     Route: 048
     Dates: start: 20121218, end: 20130528
  2. TRACLEER [Suspect]
     Dosage: 62.5 MG, BID
     Route: 048
     Dates: start: 20121123, end: 20121218
  3. TRACLEER [Suspect]
     Dosage: 62.5 MG, BID
     Route: 048
     Dates: start: 20130528
  4. ENDOXAN [Suspect]
     Indication: SYSTEMIC SCLEROSIS
     Dosage: UNK
     Route: 042
     Dates: start: 20130426, end: 20130426
  5. LOXEN [Concomitant]
     Dosage: UNK
     Dates: start: 20130416
  6. TRIATEC [Concomitant]
     Dosage: UNK
     Dates: start: 20121108
  7. INEXIUM [Concomitant]
     Dosage: UNK
     Dates: start: 20130415
  8. TARDYFERON [Concomitant]
     Dosage: UNK
     Dates: start: 20130415

REACTIONS (7)
  - Catheter site inflammation [Recovered/Resolved]
  - Pyrexia [Recovered/Resolved]
  - Aplastic anaemia [Not Recovered/Not Resolved]
  - Packed red blood cell transfusion [Unknown]
  - Haemoglobin decreased [Not Recovered/Not Resolved]
  - Asthenia [Not Recovered/Not Resolved]
  - Dyspnoea exertional [Not Recovered/Not Resolved]
